FAERS Safety Report 21630786 (Version 6)
Quarter: 2023Q1

REPORT INFORMATION
  Report Type: Spontaneous
  Country: US (occurrence: US)
  Receive Date: 20221123
  Receipt Date: 20230121
  Transmission Date: 20230418
  Serious: No
  Sender: FDA-Public Use
  Company Number: US-UNITED THERAPEUTICS-UNT-2022-028395

PATIENT
  Sex: Male
  Weight: 102.04 kg

DRUGS (4)
  1. TYVASO [Suspect]
     Active Substance: TREPROSTINIL
     Indication: Pulmonary arterial hypertension
     Dosage: UNK
     Dates: start: 20220120
  2. TYVASO [Suspect]
     Active Substance: TREPROSTINIL
     Dosage: 54 ?G, QID
     Dates: start: 2022
  3. TYVASO [Suspect]
     Active Substance: TREPROSTINIL
     Dosage: 54 ?G, QID
     Dates: start: 2022
  4. TYVASO [Suspect]
     Active Substance: TREPROSTINIL
     Dosage: UNK, (2-3 SESSIONS PER DAY)
     Dates: start: 2022

REACTIONS (5)
  - COVID-19 [Unknown]
  - Cough [Unknown]
  - Dizziness [Unknown]
  - Pain [Unknown]
  - Flushing [Unknown]

NARRATIVE: CASE EVENT DATE: 20220101
